FAERS Safety Report 5122669-9 (Version None)
Quarter: 2006Q4

REPORT INFORMATION
  Report Type: 
  Country: None (occurrence: None)
  Receive Date: 20061005
  Receipt Date: 20061005
  Transmission Date: 20070319
  Serious: Yes (Other)
  Sender: FDA-Public Use
  Company Number: None

PATIENT
  Age: 36 Year
  Sex: Male
  Weight: 77.1115 kg

DRUGS (2)
  1. METHYLPREDNISOLONE [Suspect]
     Indication: MYALGIA
     Dosage: 6 PILLS DAY 1, THEN DECREASING 6 DAYS, DECREASING PO
     Route: 048
     Dates: start: 20060927, end: 20061002
  2. METHYLPREDNISOLONE [Suspect]
     Indication: SCIATICA
     Dosage: 6 PILLS DAY 1, THEN DECREASING 6 DAYS, DECREASING PO
     Route: 048
     Dates: start: 20060927, end: 20061002

REACTIONS (7)
  - ACNE [None]
  - FLUSHING [None]
  - HYPERHIDROSIS [None]
  - ILL-DEFINED DISORDER [None]
  - PAIN IN EXTREMITY [None]
  - RESTLESSNESS [None]
  - STOMACH DISCOMFORT [None]
